FAERS Safety Report 24002229 (Version 1)
Quarter: 2024Q2

REPORT INFORMATION
  Report Type: Spontaneous
  Country: CH (occurrence: CH)
  Receive Date: 20240622
  Receipt Date: 20240622
  Transmission Date: 20240716
  Serious: Yes (Death, Other)
  Sender: FDA-Public Use
  Company Number: CH-BoehringerIngelheim-2024-BI-035267

PATIENT
  Age: 70 Year
  Sex: Female

DRUGS (4)
  1. AFATINIB [Suspect]
     Active Substance: AFATINIB
     Indication: Non-small cell lung cancer
     Dosage: DAILY DOSE: 30 MILLIGRAM(S)
     Dates: start: 202010
  2. AFATINIB [Suspect]
     Active Substance: AFATINIB
     Dosage: 2 OUT OF 3 DAYS
  3. CRIZOTINIB [Suspect]
     Active Substance: CRIZOTINIB
     Indication: Product used for unknown indication
     Dates: start: 201902
  4. CRIZOTINIB [Suspect]
     Active Substance: CRIZOTINIB

REACTIONS (7)
  - Death [Fatal]
  - Disease progression [Unknown]
  - Vascular dementia [Unknown]
  - Oedema [Unknown]
  - Skin toxicity [Unknown]
  - Confusional state [Unknown]
  - Therapy partial responder [Unknown]

NARRATIVE: CASE EVENT DATE: 20221101
